FAERS Safety Report 4815086-X (Version None)
Quarter: 2005Q4

REPORT INFORMATION
  Report Type: 
  Country: None (occurrence: None)
  Receive Date: 20051028
  Receipt Date: 20051019
  Transmission Date: 20060501
  Serious: Yes (Hospitalization)
  Sender: FDA-Public Use
  Company Number: NL-ABBOTT-05P-114-0314660-00

PATIENT
  Sex: Male

DRUGS (6)
  1. DEPAKENE [Suspect]
     Indication: EPILEPSY
     Route: 048
     Dates: start: 20010831
  2. LEVETIRACETAM [Interacting]
     Indication: EPILEPSY
     Route: 048
     Dates: start: 20050724
  3. LEVETIRACETAM [Interacting]
     Route: 048
  4. PHENYTOIN SODIUM [Interacting]
     Indication: EPILEPSY
     Dosage: 46 MG BID AND 23 MG BID
     Route: 048
     Dates: start: 20020702
  5. CLONAZEPAM [Interacting]
     Indication: EPILEPSY
     Route: 048
     Dates: start: 20020331
  6. CHLORAL HYDRATE [Concomitant]
     Indication: SLEEP DISORDER
     Route: 054
     Dates: start: 20040303

REACTIONS (2)
  - DRUG INTERACTION [None]
  - EPILEPSY [None]
